FAERS Safety Report 6407960-8 (Version None)
Quarter: 2009Q4

REPORT INFORMATION
  Report Type: 
  Country: None (occurrence: None)
  Receive Date: 20091013
  Receipt Date: 20091006
  Transmission Date: 20100525
  Serious: Yes (Hospitalization)
  Sender: FDA-Public Use
  Company Number: WAES 0909USA02059

PATIENT
  Age: 80 Year
  Sex: Male

DRUGS (9)
  1. FOSAMAX [Suspect]
     Indication: OSTEOPOROSIS
     Dosage: 5MG/DAILY PO
     Route: 048
     Dates: start: 20030101, end: 20080101
  2. ALOSENN [Concomitant]
  3. ARAVA [Concomitant]
  4. DAONIL [Concomitant]
  5. CARTEOLOL HYDROCHLORIDE [Concomitant]
  6. MG OXIDE [Concomitant]
  7. NORVASC [Concomitant]
  8. PEPCID [Concomitant]
  9. PREDNISOLONE [Concomitant]

REACTIONS (6)
  - IMPAIRED HEALING [None]
  - OSTEOMYELITIS [None]
  - OSTEONECROSIS [None]
  - PERIODONTITIS [None]
  - POOR DENTAL CONDITION [None]
  - PURULENT DISCHARGE [None]
